FAERS Safety Report 25160501 (Version 1)
Quarter: 2025Q2

REPORT INFORMATION
  Report Type: Spontaneous
  Country: US (occurrence: US)
  Receive Date: 20250404
  Receipt Date: 20250404
  Transmission Date: 20250716
  Serious: Yes (Other)
  Sender: PFIZER
  Company Number: US-PFIZER INC-202500069427

PATIENT
  Age: 67 Year
  Sex: Female
  Weight: 62.14 kg

DRUGS (4)
  1. XELJANZ [Suspect]
     Active Substance: TOFACITINIB CITRATE
     Indication: Rheumatoid arthritis
     Dosage: 5MG TABLETS TWICE A DAY
     Dates: start: 2020
  2. XELJANZ [Suspect]
     Active Substance: TOFACITINIB CITRATE
     Dosage: 2.5 MG, DAILY
  3. THYROXINE [Concomitant]
     Active Substance: LEVOTHYROXINE
     Indication: Thyroid disorder
     Dosage: STARTED TAKING 40 YEARS AGO PROBABLY
     Route: 048
  4. ESTRADIOL [Concomitant]
     Active Substance: ESTRADIOL
     Indication: Hysterosalpingo-oophorectomy
     Dosage: STARTED TAKING A GOOD 40 YEARS AGO, DOWN TO 0.5MG
     Route: 048

REACTIONS (4)
  - Chronic kidney disease [Unknown]
  - Blood cholesterol increased [Unknown]
  - Tremor [Recovering/Resolving]
  - Intentional product misuse [Unknown]

NARRATIVE: CASE EVENT DATE: 20240901
